FAERS Safety Report 8388618-5 (Version None)
Quarter: 2012Q2

REPORT INFORMATION
  Report Type: 
  Country: None (occurrence: None)
  Receive Date: 20120525
  Receipt Date: 20120515
  Transmission Date: 20120825
  Serious: Yes (Disabling)
  Sender: FDA-Public Use
  Company Number: US-MERCK-1205USA02653

PATIENT
  Age: 68 Year
  Sex: Male

DRUGS (2)
  1. TRAVATAN [Suspect]
     Indication: GLAUCOMA
     Route: 047
     Dates: start: 20061018, end: 20070709
  2. COSOPT [Suspect]
     Indication: OPEN ANGLE GLAUCOMA
     Route: 047
     Dates: start: 20050512, end: 20070709

REACTIONS (33)
  - LUNG DISORDER [None]
  - CHRONIC SINUSITIS [None]
  - CHRONIC OBSTRUCTIVE PULMONARY DISEASE [None]
  - WHEEZING [None]
  - LOSS OF CONSCIOUSNESS [None]
  - DEAFNESS NEUROSENSORY [None]
  - COUGH [None]
  - EYE INFECTION [None]
  - DERMATITIS [None]
  - BENIGN PROSTATIC HYPERPLASIA [None]
  - GASTRITIS [None]
  - PAIN [None]
  - NASAL SEPTUM DEVIATION [None]
  - BLADDER TRANSITIONAL CELL CARCINOMA STAGE I [None]
  - RHEUMATOID ARTHRITIS [None]
  - DRY EYE [None]
  - ASTHMA [None]
  - OCULAR HYPERAEMIA [None]
  - MYOCARDIAL INFARCTION [None]
  - PROSTATIC PAIN [None]
  - PINGUECULA [None]
  - DEFORMITY [None]
  - EMPHYSEMA [None]
  - OCULORESPIRATORY SYNDROME [None]
  - BLOOD URINE PRESENT [None]
  - CATARACT NUCLEAR [None]
  - PERIORBITAL OEDEMA [None]
  - OSTEOARTHRITIS [None]
  - NASAL CONGESTION [None]
  - CORONARY ARTERY DISEASE [None]
  - NEPHROCALCINOSIS [None]
  - GASTROOESOPHAGEAL REFLUX DISEASE [None]
  - LARYNGITIS [None]
